FAERS Safety Report 7001182-8 (Version None)
Quarter: 2010Q3

REPORT INFORMATION
  Report Type: 
  Country: None (occurrence: None)
  Receive Date: 20100920
  Receipt Date: 20090721
  Transmission Date: 20110219
  Serious: Yes (Other)
  Sender: FDA-Public Use
  Company Number: US-ASTRAZENECA-2007UW04497

PATIENT
  Age: 20437 Day
  Sex: Female

DRUGS (4)
  1. SEROQUEL [Suspect]
     Route: 048
     Dates: start: 20030324
  2. FLUOXETINE [Concomitant]
     Dosage: 10 MG TO 20 MG
     Dates: start: 20030324
  3. RESTORIL [Concomitant]
     Dosage: 7.5 MG TO 15 MG
     Dates: start: 20030422
  4. ALPRAZOLAM [Concomitant]
     Dates: start: 20030422

REACTIONS (3)
  - DIABETIC KETOACIDOSIS [None]
  - PANCREATITIS [None]
  - TYPE 2 DIABETES MELLITUS [None]
